FAERS Safety Report 15077169 (Version 1)
Quarter: 2018Q2

REPORT INFORMATION
  Report Type: Report from Study
  Country: KR (occurrence: KR)
  Receive Date: 20180627
  Receipt Date: 20180627
  Transmission Date: 20180711
  Serious: Yes (Death)
  Sender: FDA-Public Use
  Company Number: KR-MYLANLABS-2018M1045782

PATIENT
  Age: 59 Year
  Sex: Male

DRUGS (4)
  1. AZATHIOPRINE. [Suspect]
     Active Substance: AZATHIOPRINE
     Indication: IMMUNOSUPPRESSANT DRUG THERAPY
     Dosage: ACCUMULATIVE DOSE 20244MG AND THE AVERAGE DOSE WAS 5.8MG/DAY
     Route: 065
  2. BASILIXIMAB [Suspect]
     Active Substance: BASILIXIMAB
     Indication: IMMUNOSUPPRESSANT DRUG THERAPY
     Dosage: FOR ONE WEEK DAILY
     Route: 042
  3. CYCLOSPORIN [Suspect]
     Active Substance: CYCLOSPORINE
     Indication: IMMUNOSUPPRESSANT DRUG THERAPY
     Dosage: ACCUMULATIVE DOSE 83341MG AND THE AVERAGE DOSE WAS 275MG/DAY
     Route: 065
  4. SIROLIMUS. [Suspect]
     Active Substance: SIROLIMUS
     Indication: IMMUNOSUPPRESSANT DRUG THERAPY
     Dosage: ACCUMULATIVE DOSE 90MG AND THE AVERAGE DOSE WAS 1MG/DAY
     Route: 065

REACTIONS (4)
  - Hypophagia [Not Recovered/Not Resolved]
  - Oropharyngeal cancer [Fatal]
  - Tonsil cancer [Fatal]
  - Squamous cell carcinoma [Fatal]
